FAERS Safety Report 8212604-9 (Version None)
Quarter: 2012Q1

REPORT INFORMATION
  Report Type: 
  Country: None (occurrence: None)
  Receive Date: 20120315
  Receipt Date: 20120307
  Transmission Date: 20120608
  Serious: Yes (Hospitalization, Other)
  Sender: FDA-Public Use
  Company Number: US-BAYER-2011-052326

PATIENT
  Age: 20 Year
  Sex: Female
  Weight: 104.31 kg

DRUGS (4)
  1. LORAZEPAM [Concomitant]
     Dosage: 0.5 MG, UNK
     Dates: start: 20071001
  2. YAZ [Suspect]
     Dosage: UNK
     Route: 048
     Dates: start: 20070501, end: 20090401
  3. BUPROPION HYDROCHLORIDE [Concomitant]
     Dosage: 150 MG, UNK
     Dates: start: 20071001
  4. DROSPIRENONE AND ETHINYL ESTRADIOL [Suspect]
     Dosage: UNK
     Route: 048
     Dates: start: 20070501, end: 20090401

REACTIONS (14)
  - DIARRHOEA [None]
  - INJURY [None]
  - DYSPEPSIA [None]
  - CONSTIPATION [None]
  - PAIN [None]
  - ANXIETY [None]
  - FLATULENCE [None]
  - CHOLECYSTECTOMY [None]
  - CHOLECYSTITIS CHRONIC [None]
  - SCAR [None]
  - DEPRESSION [None]
  - EMOTIONAL DISTRESS [None]
  - ABDOMINAL DISTENSION [None]
  - MEDICAL DIET [None]
